FAERS Safety Report 13075818 (Version 3)
Quarter: 2017Q1

REPORT INFORMATION
  Report Type: Spontaneous
  Country: IT (occurrence: IT)
  Receive Date: 20161230
  Receipt Date: 20170301
  Transmission Date: 20170428
  Serious: Yes (Other)
  Sender: FDA-Public Use
  Company Number: IT-009507513-1612ITA014237

PATIENT
  Age: 79 Year
  Sex: Female
  Weight: 60 kg

DRUGS (18)
  1. BISOPROLOL FUMARATE. [Concomitant]
     Active Substance: BISOPROLOL FUMARATE
     Dosage: 1.25 MG, UNK
     Route: 048
     Dates: start: 2017
  2. ZETIA [Suspect]
     Active Substance: EZETIMIBE
     Indication: HYPERCHOLESTEROLAEMIA
     Dosage: 10 MG, QD
     Route: 048
     Dates: start: 20130628
  3. FUROSEMIDE. [Concomitant]
     Active Substance: FUROSEMIDE
     Dosage: 12.5 MG, UNK
     Dates: start: 2017
  4. COUMADIN [Concomitant]
     Active Substance: WARFARIN SODIUM
     Dosage: 5 MG, UNK
     Dates: start: 2017
  5. LUVION (CANRENONE) [Concomitant]
     Active Substance: CANRENONE
     Dosage: 25 MG, UNK
     Route: 048
     Dates: start: 2017
  6. LORTAAN [Concomitant]
     Active Substance: LOSARTAN POTASSIUM
     Dosage: 12.5 MG, UNK
     Route: 048
     Dates: start: 2017
  7. LANOXIN [Concomitant]
     Active Substance: DIGOXIN
     Dosage: 0.0625 MG, UNK
     Dates: start: 2017
  8. LUVION (CANRENONE) [Concomitant]
     Active Substance: CANRENONE
     Dosage: 50 MG TABLET
     Route: 048
     Dates: start: 2017
  9. FUROSEMIDE. [Concomitant]
     Active Substance: FUROSEMIDE
     Dosage: 25 MG TABLET
  10. FUROSEMIDE. [Concomitant]
     Active Substance: FUROSEMIDE
     Dosage: 12.5 MG, UNK
  11. LORTAAN [Concomitant]
     Active Substance: LOSARTAN POTASSIUM
     Dosage: 12.5 MG, UNK
     Route: 048
  12. BISOPROLOL FUMARATE. [Concomitant]
     Active Substance: BISOPROLOL FUMARATE
     Dosage: 1.25 MG, UNK
     Route: 048
     Dates: start: 20111111, end: 20161223
  13. PERIDON [Concomitant]
     Active Substance: DOMPERIDONE
     Dosage: 10 MG, EFFERVESCENT GRANULES
  14. COUMADIN [Concomitant]
     Active Substance: WARFARIN SODIUM
     Dosage: 5 MG, UNK
     Dates: start: 20111111, end: 20161223
  15. LANOXIN [Concomitant]
     Active Substance: DIGOXIN
     Dosage: 0.0625 MG, UNK
     Dates: start: 20111111, end: 20161223
  16. LUVION (CANRENONE) [Concomitant]
     Active Substance: CANRENONE
     Dosage: 25 MG, UNK
     Route: 048
  17. PERIDON [Concomitant]
     Active Substance: DOMPERIDONE
     Dosage: 10 MG SACHET
     Dates: start: 2017
  18. DIBASE [Concomitant]
     Active Substance: CHOLECALCIFEROL
     Dosage: 1 ML VIAL,100000 IU/M

REACTIONS (3)
  - Bile duct stone [Recovering/Resolving]
  - Biliary colic [Recovering/Resolving]
  - Cholelithiasis [Recovering/Resolving]

NARRATIVE: CASE EVENT DATE: 20161206
